FAERS Safety Report 5873959-3 (Version None)
Quarter: 2008Q3

REPORT INFORMATION
  Report Type: 
  Country: None (occurrence: None)
  Receive Date: 20080908
  Receipt Date: 20080903
  Transmission Date: 20090109
  Serious: Yes (Hospitalization, Disabling)
  Sender: FDA-Public Use
  Company Number: US-MERCK-0805USA00888

PATIENT
  Age: 58 Year
  Sex: Female

DRUGS (2)
  1. FOSAMAX [Suspect]
     Indication: OSTEOPOROSIS
     Route: 048
     Dates: start: 20011210, end: 20061102
  2. FOSAMAX [Suspect]
     Route: 048
     Dates: start: 20011210, end: 20061102

REACTIONS (5)
  - BACK DISORDER [None]
  - DIZZINESS [None]
  - IMPAIRED HEALING [None]
  - ORAL INFECTION [None]
  - OSTEONECROSIS [None]
